FAERS Safety Report 15389463 (Version 1)
Quarter: 2018Q4

REPORT INFORMATION
  Report Type: Spontaneous
  Country: BR (occurrence: BR)
  Receive Date: 20180917
  Receipt Date: 20180917
  Transmission Date: 20190204
  Serious: Yes (Other)
  Sender: FDA-Public Use
  Company Number: BR-TEVA-2018-BR-954783

PATIENT
  Age: 65 Year
  Sex: Female

DRUGS (3)
  1. TEVAMETHO 25MG [Suspect]
     Active Substance: METHOTREXATE
     Indication: PSORIASIS
     Dosage: STARTED MORE THAN 5 YEARS AGO
  2. LOSARTAN. [Concomitant]
     Active Substance: LOSARTAN
     Indication: HYPERTENSION
     Dosage: 1 TABLET IN THE MORNING, SINCE ABOUT 3 YEARS AGO
     Route: 065
  3. SIMVASTATIN. [Concomitant]
     Active Substance: SIMVASTATIN
     Indication: BLOOD CHOLESTEROL INCREASED
     Dosage: 1 TABLET AT NIGHT, SINCE ABOUT 1 MONTH AGO
     Route: 065

REACTIONS (1)
  - Urinary tract infection [Recovering/Resolving]
